FAERS Safety Report 26176703 (Version 1)
Quarter: 2025Q4

REPORT INFORMATION
  Report Type: Spontaneous
  Country: US (occurrence: US)
  Receive Date: 20251218
  Receipt Date: 20251218
  Transmission Date: 20260117
  Serious: Yes (Other)
  Sender: MERCK SHARP & DOHME LLC
  Company Number: US-009507513-2362053

PATIENT
  Age: 50 Year
  Sex: Male
  Weight: 123 kg

DRUGS (22)
  1. SUGAMMADEX [Suspect]
     Active Substance: SUGAMMADEX
  2. CARVEDILOL [Concomitant]
     Active Substance: CARVEDILOL
     Dosage: 6.25 MG DAILY
  3. SPIRONOLACTONE [Concomitant]
     Active Substance: SPIRONOLACTONE
     Dosage: 25 MG DAILY
  4. TORSEMIDE [Concomitant]
     Active Substance: TORSEMIDE
     Dosage: 5 MG DAILY
  5. CARIPRAZINE [Concomitant]
     Active Substance: CARIPRAZINE
     Dosage: 1.5 DAILY
  6. ISOSORBIDE [Concomitant]
     Active Substance: ISOSORBIDE
     Dosage: 30 MG DAILY
  7. NITROGLYCERIN [Concomitant]
     Active Substance: NITROGLYCERIN
     Dosage: TIME INTERVAL: AS NECESSARY: 0.4 MG SUBLINGUAL PRN
     Route: 060
  8. MIDAZOLAM [Concomitant]
     Active Substance: MIDAZOLAM
     Dosage: TIME INTERVAL: TOTAL: 2 MG
  9. LIDOCAINE [Concomitant]
     Active Substance: LIDOCAINE
     Dosage: TIME INTERVAL: TOTAL
     Route: 042
  10. FENTANYL [Concomitant]
     Active Substance: FENTANYL
     Dosage: TIME INTERVAL: TOTAL
  11. PROPOFOL [Concomitant]
     Active Substance: PROPOFOL
     Dosage: TIME INTERVAL: TOTAL
  12. ROCURONIUM [Concomitant]
     Active Substance: ROCURONIUM BROMIDE
  13. ATORVASTATIN [Concomitant]
     Active Substance: ATORVASTATIN
     Dosage: 80 MG DAILY
  14. LOSARTAN [Concomitant]
     Active Substance: LOSARTAN
     Dosage: 25 MG DAILY
  15. EZETIMIBE [Concomitant]
     Active Substance: EZETIMIBE
     Dosage: 10 MG DAILY
  16. SEVOFLURANE [Concomitant]
     Active Substance: SEVOFLURANE
  17. AMINOCAPROIC ACID [Concomitant]
     Active Substance: AMINOCAPROIC ACID
     Dosage: INFUSION
  18. HEPARIN [Concomitant]
     Active Substance: HEPARIN SODIUM
     Dosage: TIME INTERVAL: TOTAL: 37 000 UNITS
  19. EPINEPHRINE [Concomitant]
     Active Substance: EPINEPHRINE
     Dosage: 0.01 UG/KG/MIN INFUSION
  20. NOREPINEPHRINE [Concomitant]
     Active Substance: NOREPINEPHRINE
     Dosage: 0.02 UG/KG/MIN INFUSION
  21. PROTAMINE [Concomitant]
     Active Substance: PROTAMINE
     Dosage: TIME INTERVAL: TOTAL
  22. DEXMEDETOMIDINE [Concomitant]
     Active Substance: DEXMEDETOMIDINE
     Dosage: 0.4 UG/ KG/HR INFUSION

REACTIONS (1)
  - Anaphylactic reaction [Unknown]
